FAERS Safety Report 9819125 (Version 1)
Quarter: 2014Q1

REPORT INFORMATION
  Report Type: Spontaneous
  Country: IT (occurrence: IT)
  Receive Date: 20140115
  Receipt Date: 20140115
  Transmission Date: 20141002
  Serious: Yes (Life-Threatening, Other)
  Sender: FDA-Public Use
  Company Number: IT-BRISTOL-MYERS SQUIBB COMPANY-20012241

PATIENT
  Age: 87 Year
  Sex: Male

DRUGS (8)
  1. COUMADIN TABS 5 MG [Suspect]
     Indication: ATRIAL FIBRILLATION
     Dates: start: 20131001, end: 20131230
  2. CLEXANE [Suspect]
     Indication: ATRIAL FIBRILLATION
     Dosage: 1DF:1UNIT,6000 IU AXA/0.6ML INJ SOLN.
     Route: 058
     Dates: start: 20131221, end: 20131230
  3. CONGESCOR [Concomitant]
     Dosage: TABS
  4. LANOXIN [Concomitant]
     Dosage: TABS
  5. OMEPRAZEN [Concomitant]
     Dosage: CAPS
  6. LASIX [Concomitant]
     Dosage: TABS
  7. SUGUAN [Concomitant]
     Dosage: 400+2.5 MG TABS
  8. TAMSULOSIN [Concomitant]
     Dosage: CAPS

REACTIONS (3)
  - Cerebral haemorrhage [Not Recovered/Not Resolved]
  - Coagulopathy [Not Recovered/Not Resolved]
  - Amaurosis [Unknown]
